FAERS Safety Report 10286208 (Version 2)
Quarter: 2014Q3

REPORT INFORMATION
  Report Type: Spontaneous
  Country: US (occurrence: None)
  Receive Date: 20140707
  Receipt Date: 20140820
  Transmission Date: 20150326
  Serious: Yes (Hospitalization, Other)
  Sender: FDA-Public Use
  Company Number: ADR-2014-01152

PATIENT
  Age: 84 Year
  Sex: Male

DRUGS (3)
  1. DICLOFENAC [Suspect]
     Active Substance: DICLOFENAC
     Indication: NECK PAIN
     Dosage: 75MG UP TP TWICE DAILY
  2. BACLOFEN. [Suspect]
     Active Substance: BACLOFEN
     Indication: NECK PAIN
     Dosage: 10MG UP TO TWICE DAILY
  3. ACETAMINOPHEN. [Suspect]
     Active Substance: ACETAMINOPHEN
     Route: 048

REACTIONS (8)
  - Confusional state [None]
  - Tenderness [None]
  - Renal failure acute [None]
  - Paradoxical drug reaction [None]
  - Dyskinesia [None]
  - Joint hyperextension [None]
  - Toxicity to various agents [None]
  - Nephropathy toxic [None]
